FAERS Safety Report 14475489 (Version 1)
Quarter: 2018Q1

REPORT INFORMATION
  Report Type: Spontaneous
  Country: GB (occurrence: GB)
  Receive Date: 20180201
  Receipt Date: 20180201
  Transmission Date: 20180509
  Serious: Yes (Life-Threatening, Other)
  Sender: FDA-Public Use
  Company Number: GB-BRISTOL-MYERS SQUIBB COMPANY-BMS-2018-007495

PATIENT
  Age: 91 Year
  Sex: Female
  Weight: 55.6 kg

DRUGS (1)
  1. APIXABAN [Suspect]
     Active Substance: APIXABAN
     Indication: CEREBROVASCULAR ACCIDENT PROPHYLAXIS
     Dosage: 2.5 MG, UNK
     Route: 048
     Dates: start: 20150218, end: 20171203

REACTIONS (5)
  - Melaena [Unknown]
  - Pulseless electrical activity [Unknown]
  - Haemodynamic instability [Unknown]
  - Upper gastrointestinal haemorrhage [Recovered/Resolved with Sequelae]
  - Cardiac arrest [Unknown]

NARRATIVE: CASE EVENT DATE: 20171203
